FAERS Safety Report 5726380-2 (Version None)
Quarter: 2008Q2

REPORT INFORMATION
  Report Type: 
  Country: None (occurrence: None)
  Receive Date: 20080502
  Receipt Date: 20080424
  Transmission Date: 20081010
  Serious: Yes (Hospitalization)
  Sender: FDA-Public Use
  Company Number: FR-AVENTIS-200811586FR

PATIENT
  Age: 43 Year
  Sex: Male

DRUGS (2)
  1. KETEK [Suspect]
     Route: 048
     Dates: start: 20071210, end: 20071216
  2. CORTICOSTEROIDS [Concomitant]
     Dates: start: 20071210, end: 20071216

REACTIONS (4)
  - ANAEMIA [None]
  - BICYTOPENIA [None]
  - NEUTROPENIA [None]
  - PANCYTOPENIA [None]
